FAERS Safety Report 6711887-1 (Version None)
Quarter: 2010Q2

REPORT INFORMATION
  Report Type: 
  Country: None (occurrence: None)
  Receive Date: 20100505
  Receipt Date: 20100427
  Transmission Date: 20101027
  Serious: Yes (Life-Threatening)
  Sender: FDA-Public Use
  Company Number: JP-MERCK-1004USA01321

PATIENT
  Age: 50 Year
  Sex: Male
  Weight: 75 kg

DRUGS (6)
  1. COZAAR [Suspect]
     Indication: HYPERTENSION
     Route: 048
     Dates: start: 20100325, end: 20100401
  2. COZAAR [Suspect]
     Route: 048
     Dates: start: 20100402
  3. COZAAR [Suspect]
     Route: 048
     Dates: start: 20090601, end: 20100324
  4. OREN-GEDOKU-TO [Concomitant]
     Indication: INFLAMMATION
     Route: 048
     Dates: start: 20090522
  5. NEUVITA [Concomitant]
     Indication: VITAMIN B1 DEFICIENCY
     Route: 048
     Dates: start: 20090501
  6. URALYT U [Concomitant]
     Indication: PH URINE INCREASED
     Route: 048
     Dates: start: 20090618

REACTIONS (3)
  - ALTERED STATE OF CONSCIOUSNESS [None]
  - HYPOTENSION [None]
  - VENTRICULAR EXTRASYSTOLES [None]
